FAERS Safety Report 25662432 (Version 1)
Quarter: 2025Q3

REPORT INFORMATION
  Report Type: Report from Study
  Country: US (occurrence: US)
  Receive Date: 20250810
  Receipt Date: 20250810
  Transmission Date: 20251020
  Serious: Yes (Other)
  Sender: ABBVIE
  Company Number: US-ABBVIE-6093054

PATIENT
  Age: 64 Year
  Sex: Female

DRUGS (1)
  1. RINVOQ [Suspect]
     Active Substance: UPADACITINIB
     Indication: Rheumatoid arthritis
     Route: 048
     Dates: start: 20230701

REACTIONS (12)
  - Hypertrophic cardiomyopathy [Unknown]
  - Musculoskeletal stiffness [Unknown]
  - Arthropathy [Unknown]
  - Liver function test abnormal [Unknown]
  - Joint stiffness [Unknown]
  - Joint lock [Unknown]
  - Renal function test abnormal [Unknown]
  - Arthralgia [Unknown]
  - Arthralgia [Unknown]
  - Blood triglycerides increased [Unknown]
  - Blood cholesterol increased [Unknown]
  - Arthropathy [Unknown]

NARRATIVE: CASE EVENT DATE: 20230101
